FAERS Safety Report 11413596 (Version 17)
Quarter: 2021Q4

REPORT INFORMATION
  Report Type: Spontaneous
  Country: US (occurrence: US)
  Receive Date: 20150824
  Receipt Date: 20211223
  Transmission Date: 20220303
  Serious: Yes (Hospitalization, Other)
  Sender: FDA-Public Use
  Company Number: US-PFIZER INC-2015279997

PATIENT
  Age: 84 Year
  Sex: Female
  Weight: 86 kg

DRUGS (39)
  1. LYRICA [Suspect]
     Active Substance: PREGABALIN
     Indication: Fibromyalgia
     Dosage: 150 MG, 3X/DAY
     Route: 048
  2. LYRICA [Suspect]
     Active Substance: PREGABALIN
     Indication: Myositis
     Dosage: 150 MG, 1X/DAY
     Route: 048
  3. LYRICA [Suspect]
     Active Substance: PREGABALIN
     Dosage: 150 MG, 3X/DAY
     Route: 048
  4. LYRICA [Suspect]
     Active Substance: PREGABALIN
     Dosage: 150 MG, 3X/DAY
     Route: 048
     Dates: start: 20190408
  5. LYRICA [Suspect]
     Active Substance: PREGABALIN
     Dosage: UNK
  6. LYRICA [Suspect]
     Active Substance: PREGABALIN
     Dosage: 100 MG, 2X/DAY (TAKE ONE CAPSULE (100 MG TOTAL) BY MOUTH TWO TIMES A DAY)
     Route: 048
     Dates: start: 20200916, end: 20201104
  7. LYRICA [Suspect]
     Active Substance: PREGABALIN
     Dosage: 100 MG, 2X/DAY (TAKE ONE CAPSULE (100 MG TOTAL) BY MOUTH TWO TIMES A DAY)
     Route: 048
     Dates: start: 20201104
  8. AMITRIPTYLINE [Concomitant]
     Active Substance: AMITRIPTYLINE
     Dosage: 10 MG, 1X/DAY (10 MG, ONE AT NIGHT)
  9. AMLODIPINE [Concomitant]
     Active Substance: AMLODIPINE BESYLATE
     Indication: Blood pressure abnormal
     Dosage: 10 MG, DAILY
  10. EZETIMIBE [Concomitant]
     Active Substance: EZETIMIBE
     Dosage: UNK
  11. ZETIA [Concomitant]
     Active Substance: EZETIMIBE
     Indication: Blood cholesterol abnormal
     Dosage: 10 MG, 1X/DAY (TAKE ONE TABLET (10 MG TOTAL) BY MOUTH DAILY)
     Route: 048
     Dates: start: 20200518
  12. FERROUS SULFATE [Concomitant]
     Active Substance: FERROUS SULFATE
     Dosage: UNK, DAILY (324 MG HAS 65 MG OF IRON AND I TAKE ONE A DAY)
  13. TRIAMTERENE AND HYDROCHLOROTHIAZIDE [Concomitant]
     Active Substance: HYDROCHLOROTHIAZIDE\TRIAMTERENE
     Indication: Diuretic therapy
     Dosage: UNK, 1X/DAY (7.5 MG TRIAMTERENE AND 25 MG HYDROCHLOROTHIAZIDE)
  14. TRIAMTERENE AND HYDROCHLOROTHIAZIDE [Concomitant]
     Active Substance: HYDROCHLOROTHIAZIDE\TRIAMTERENE
     Dosage: UNK, 1X/DAY (37.5, ONCE A DAY)
  15. LABETALOL [Concomitant]
     Active Substance: LABETALOL\LABETALOL HYDROCHLORIDE
     Indication: Blood pressure abnormal
     Dosage: 200 MG, 2X/DAY (I TAKE THAT ONE HALF IN THE MORNING AND ONE WHOLE ONE AT THE NIGHT)
     Route: 048
  16. LABETALOL [Concomitant]
     Active Substance: LABETALOL\LABETALOL HYDROCHLORIDE
     Dosage: UNK (200 MG)
  17. LEVOTHYROXINE [Concomitant]
     Active Substance: LEVOTHYROXINE
     Indication: Hypothyroidism
     Dosage: 50 UG, 1X/DAY (50 MCG, ONCE IN THE MORNING)
  18. MELOXICAM [Concomitant]
     Active Substance: MELOXICAM
     Indication: Arthritis
     Dosage: 7.5 MG, 1X/DAY
  19. MELOXICAM [Concomitant]
     Active Substance: MELOXICAM
     Indication: Pain
  20. POTASSIUM [Concomitant]
     Active Substance: POTASSIUM
     Indication: Blood potassium abnormal
     Dosage: 10 MEQ, 2X/DAY
  21. POTASSIUM CHLORIDE [Concomitant]
     Active Substance: POTASSIUM CHLORIDE
     Dosage: 10 MEQ, 2X/DAY (TAKE ONE TABLET (10 MEQ TOTAL) BY MOUTH TWO TIMES A DAY)
     Route: 048
     Dates: start: 20200828
  22. PANTOPRAZOLE [Concomitant]
     Active Substance: PANTOPRAZOLE
     Dosage: (40 MG)
  23. TRAMADOL [Concomitant]
     Active Substance: TRAMADOL
     Indication: Arthritis
     Dosage: 50 MG, AS NEEDED (EVERY 6 HOURS)
  24. TYLENOL [Concomitant]
     Active Substance: ACETAMINOPHEN
     Indication: Pain
     Dosage: UNK, AS NEEDED (TAKEN TYLENOL WHEN I NEED IT)
  25. ACETAMINOPHEN [Concomitant]
     Active Substance: ACETAMINOPHEN
     Dosage: 650 MG, 3X/DAY
     Route: 048
  26. ELAVIL [Concomitant]
     Active Substance: AMITRIPTYLINE HYDROCHLORIDE
     Dosage: 10 MG, 1X/DAY (TAKE ONE TABLET (10 MG TOTAL) BY MOUTH NIGHTLY)
     Route: 048
     Dates: start: 20200914
  27. VITAMIN D3 [Concomitant]
     Active Substance: CHOLECALCIFEROL
     Dosage: 1000 IU, DAILY (TAKE ONE TABLET (1,000 UNITS TOTAL) BY MOUTH DAILY)
     Route: 048
     Dates: start: 20180416, end: 20201104
  28. CRANBERRY [Concomitant]
     Active Substance: CRANBERRY
     Dosage: 400 MG, 2X/DAY (TAKE 400 MG BY MOUTH TWO TIMES A DAY)
     Route: 048
     Dates: start: 20180213
  29. FLECTOR [Concomitant]
     Active Substance: DICLOFENAC EPOLAMINE
     Dosage: UNK, 2X/DAY (APPLY PATCH TO AFFECTED AREA TWICE DAILY)
     Route: 061
     Dates: start: 20200831
  30. DOCONEXENT\ICOSAPENT [Concomitant]
     Active Substance: DOCONEXENT\ICOSAPENT
     Dosage: 2 G, DAILY
     Route: 048
  31. NORMODYNE [Concomitant]
     Active Substance: LABETALOL HYDROCHLORIDE
     Indication: Hypertension
     Dosage: UNK (TAKE ONE-HALF TABLET BY MOUTH IN THE MORNING AND 1 TABLET IN THE EVENING)
     Route: 048
     Dates: start: 20201103
  32. SYNTHROID [Concomitant]
     Active Substance: LEVOTHYROXINE SODIUM
     Dosage: 50 UG, DAILY (TAKE ONE TABLET (50 MCG TOTAL) BY MOUTH DAILY)
     Route: 048
     Dates: start: 20200930
  33. LEVOTHROID [Concomitant]
     Active Substance: LEVOTHYROXINE SODIUM
     Dosage: 50 UG, DAILY (TAKE ONE TABLET (50 MCG TOTAL) BY MOUTH DAILY)
     Route: 048
     Dates: start: 20200930
  34. FISH OIL/OMEGA-3 FATTY ACIDS [Concomitant]
     Dosage: 2 G, DAILY (TAKE 2 G BY MOUTH DAILY)
     Route: 048
  35. PROTONIX [Concomitant]
     Active Substance: PANTOPRAZOLE SODIUM
     Dosage: 40 MG, DAILY (TAKE ONE TABLET (40 MG TOTAL) BY MOUTH DAILY)
     Route: 048
     Dates: start: 20201021
  36. VITAMINS [Concomitant]
     Active Substance: VITAMINS
     Dosage: 1 DF, DAILY (TAKE ONE TABLET BY MOUTH NIGHTLY)
     Route: 048
  37. MIRALAX [Concomitant]
     Active Substance: POLYETHYLENE GLYCOL 3350
     Dosage: 17 G, AS NEEDED (TAKE 17 G BY MOUTH DAILY AS NEEDED)
     Route: 048
     Dates: start: 20180214
  38. BROMFENAC/PREDNISOLONE ACETATE [Concomitant]
     Dosage: UNK
     Dates: start: 20200608
  39. MAXZIDE [Concomitant]
     Active Substance: HYDROCHLOROTHIAZIDE\TRIAMTERENE
     Dosage: 1 DF, DAILY (TAKE ONE TABLET BY MOUTH DAILY)
     Route: 048
     Dates: start: 20201103

REACTIONS (11)
  - Arthralgia [Unknown]
  - Mobility decreased [Unknown]
  - Hiatus hernia [Unknown]
  - Intentional product use issue [Unknown]
  - Illness [Recovered/Resolved]
  - Feeling abnormal [Unknown]
  - Dizziness [Recovering/Resolving]
  - Gastrooesophageal reflux disease [Unknown]
  - Sedation complication [Recovering/Resolving]
  - Loss of personal independence in daily activities [Unknown]
  - Fall [Unknown]

NARRATIVE: CASE EVENT DATE: 20150701
